FAERS Safety Report 7211721-X (Version None)
Quarter: 2011Q1

REPORT INFORMATION
  Report Type: 
  Country: None (occurrence: None)
  Receive Date: 20110105
  Receipt Date: 20101229
  Transmission Date: 20110831
  Serious: Yes (Other)
  Sender: FDA-Public Use
  Company Number: CA-PFIZER INC-2010035110

PATIENT
  Age: 62 Year
  Sex: Male
  Weight: 88 kg

DRUGS (6)
  1. RAMIPRIL [Concomitant]
     Indication: BLOOD PRESSURE
     Dosage: 10 MG, 1X/DAY
     Dates: start: 20040201
  2. CHAMPIX [Suspect]
     Indication: SMOKING CESSATION THERAPY
     Dosage: UNK
     Route: 048
     Dates: start: 20100101, end: 20100212
  3. LIPITOR [Suspect]
     Dosage: 20 MG, 1X/DAY
     Dates: start: 20040201
  4. RAMIPRIL [Concomitant]
     Indication: CARDIAC DISORDER
  5. ASPIRIN [Concomitant]
     Dosage: UNK
  6. ELTROXIN [Concomitant]
     Indication: THYROID DISORDER
     Dosage: 0.15 MG, 1X/DAY
     Dates: start: 19750101

REACTIONS (8)
  - DIZZINESS [None]
  - DYSPNOEA [None]
  - HEADACHE [None]
  - DYSGEUSIA [None]
  - NAUSEA [None]
  - FLATULENCE [None]
  - MUSCLE SPASMS [None]
  - INSOMNIA [None]
